FAERS Safety Report 9440498 (Version 1)
Quarter: 2013Q3

REPORT INFORMATION
  Report Type: Spontaneous
  Country: TH (occurrence: TH)
  Receive Date: 20130805
  Receipt Date: 20130805
  Transmission Date: 20140515
  Serious: Yes (Other)
  Sender: FDA-Public Use
  Company Number: TH-MYLANLABS-2013S1016525

PATIENT
  Age: 65 Year
  Sex: Female

DRUGS (3)
  1. AMLODIPINE [Suspect]
     Indication: METABOLIC SYNDROME
     Route: 065
  2. ATENOLOL [Concomitant]
     Indication: METABOLIC SYNDROME
     Route: 065
  3. SIMVASTATIN [Concomitant]
     Indication: METABOLIC SYNDROME
     Route: 065

REACTIONS (2)
  - Stevens-Johnson syndrome [Recovered/Resolved]
  - Stomatitis [Recovered/Resolved]
